FAERS Safety Report 6133715-8 (Version None)
Quarter: 2009Q1

REPORT INFORMATION
  Report Type: 
  Country: None (occurrence: None)
  Receive Date: 20090326
  Receipt Date: 20090320
  Transmission Date: 20090719
  Serious: Yes (Other)
  Sender: FDA-Public Use
  Company Number: B0566494A

PATIENT
  Age: 44 Year
  Sex: Male

DRUGS (2)
  1. ZIAGEN [Suspect]
     Indication: HIV INFECTION
     Route: 048
     Dates: start: 20050224, end: 20050412
  2. COMBIVIR [Suspect]
     Indication: HIV INFECTION
     Dates: start: 20050224

REACTIONS (1)
  - DRUG RASH WITH EOSINOPHILIA AND SYSTEMIC SYMPTOMS [None]
